FAERS Safety Report 5699595-X (Version None)
Quarter: 2008Q2

REPORT INFORMATION
  Report Type: 
  Country: None (occurrence: None)
  Receive Date: 20080410
  Receipt Date: 20080402
  Transmission Date: 20081010
  Serious: Yes (Hospitalization)
  Sender: FDA-Public Use
  Company Number: FR-ELI_LILLY_AND_COMPANY-FR200804000805

PATIENT
  Sex: Female
  Weight: 47 kg

DRUGS (2)
  1. GEMCITABINE HCL [Suspect]
     Indication: PANCREATIC CARCINOMA METASTATIC
     Dosage: 1000 MG/M2, OTHER
     Route: 042
     Dates: start: 20080313, end: 20080313
  2. BLINDED THERAPY [Suspect]
     Indication: PANCREATIC CARCINOMA METASTATIC
     Dosage: 5 MG, 2/D
     Route: 048
     Dates: start: 20080313, end: 20080315

REACTIONS (4)
  - AMMONIA ABNORMAL [None]
  - CONFUSIONAL STATE [None]
  - HEPATIC ENCEPHALOPATHY [None]
  - LIVER FUNCTION TEST ABNORMAL [None]
